FAERS Safety Report 21164579 (Version 2)
Quarter: 2022Q3

REPORT INFORMATION
  Report Type: Spontaneous
  Country: CN (occurrence: CN)
  Receive Date: 20220803
  Receipt Date: 20220809
  Transmission Date: 20221027
  Serious: Yes (Other)
  Sender: FDA-Public Use
  Company Number: CN-009507513-2207CHN008997

PATIENT
  Age: 66 Year
  Sex: Female

DRUGS (6)
  1. KEYTRUDA [Suspect]
     Active Substance: PEMBROLIZUMAB
     Indication: Lung adenocarcinoma
     Dosage: FOUR CYCLES
     Dates: start: 202008
  2. KEYTRUDA [Suspect]
     Active Substance: PEMBROLIZUMAB
     Dosage: TWO CYCLES
  3. PEMETREXED [Concomitant]
     Active Substance: PEMETREXED
     Dosage: FOUR CYCLES
     Dates: start: 2020
  4. PEMETREXED [Concomitant]
     Active Substance: PEMETREXED
     Dosage: TWO CYCLES
  5. CARBOPLATIN [Concomitant]
     Active Substance: CARBOPLATIN
     Dosage: FOUR CYCLES
     Dates: start: 2020
  6. BEVACIZUMAB [Concomitant]
     Active Substance: BEVACIZUMAB
     Dosage: FOUR CYCLES
     Dates: start: 2020

REACTIONS (9)
  - Pancreatitis chronic [Unknown]
  - Ureteric obstruction [Unknown]
  - Ureteric dilatation [Unknown]
  - Biliary tract disorder [Unknown]
  - Peritoneal disorder [Unknown]
  - Fibrosis [Unknown]
  - Inflammation [Unknown]
  - Connective tissue disorder [Unknown]
  - Product use in unapproved indication [Unknown]

NARRATIVE: CASE EVENT DATE: 20200801
